FAERS Safety Report 6905440-4 (Version None)
Quarter: 2010Q3

REPORT INFORMATION
  Report Type: 
  Country: None (occurrence: None)
  Receive Date: 20100804
  Receipt Date: 20100721
  Transmission Date: 20110219
  Serious: Yes (Hospitalization, Other)
  Sender: FDA-Public Use
  Company Number: PHEH2007US05483

PATIENT
  Sex: Female
  Weight: 92.517 kg

DRUGS (25)
  1. AREDIA [Suspect]
     Dosage: 90MG EVERY MONTH
     Route: 042
  2. ZOMETA [Suspect]
     Dosage: MONTHLY
  3. BEXTRA [Concomitant]
  4. COUMADIN [Concomitant]
     Dosage: 2.5MG DAILY
  5. LORTAB [Concomitant]
     Dosage: 7.5MG AS NEEDED
  6. AMBIEN [Concomitant]
     Dosage: 10MG AT BEDTIME
  7. PRILOSEC [Concomitant]
     Dosage: 20MG AS NEEDED
  8. MIRALAX [Concomitant]
     Dosage: AS NEEDED
  9. POTASSIUM [Concomitant]
     Dosage: 20 MEQ DAILY
  10. MS CONTIN [Concomitant]
     Dosage: 30MG TWICE DAILY
  11. CHROMAGEN [Concomitant]
     Dosage: DAILY
  12. PROCRIT                            /00909301/ [Concomitant]
     Dosage: 40, 000 UNITS WEEKLY
  13. SENOKOT                                 /UNK/ [Concomitant]
     Dosage: AS NEEDED
  14. DECADRON [Concomitant]
  15. LIPITOR [Concomitant]
  16. DURAGESIC-100 [Concomitant]
     Dosage: 50 MCG, EVERY 72 HOURS
  17. LEVAQUIN [Concomitant]
     Dosage: 500 MG DAILY
  18. COMPAZINE [Concomitant]
     Dosage: UNK, PRN
  19. PEPCID [Concomitant]
     Dosage: 40 MG, AS NEEDED
  20. K-DUR [Concomitant]
     Dosage: 20 MEQ DAILY
  21. XANAX [Concomitant]
     Dosage: 0.5MG, ONE
     Route: 048
  22. TYLENOL [Concomitant]
     Dosage: UNK,
  23. SEPTRA DS [Concomitant]
     Dosage: UNK, BID
  24. CIPRO [Concomitant]
  25. INTERFERON [Concomitant]
     Dosage: 3,000,000 UNITS THREE TIMES A WEEK

REACTIONS (28)
  - ANAEMIA [None]
  - ANXIETY [None]
  - ASTHMA [None]
  - BACK PAIN [None]
  - BONE PAIN [None]
  - CHEST PAIN [None]
  - CHRONIC SINUSITIS [None]
  - COMPRESSION FRACTURE [None]
  - HEADACHE [None]
  - HYPOKALAEMIA [None]
  - INJURY [None]
  - MALAISE [None]
  - MITRAL VALVE INCOMPETENCE [None]
  - MONOCLONAL IMMUNOGLOBULIN PRESENT [None]
  - NASAL CONGESTION [None]
  - NAUSEA [None]
  - NOCTURIA [None]
  - OESOPHAGEAL CANDIDIASIS [None]
  - OESOPHAGEAL STENOSIS [None]
  - ORAL HERPES [None]
  - OSTEONECROSIS OF JAW [None]
  - PAIN [None]
  - PAIN IN EXTREMITY [None]
  - PAIN IN JAW [None]
  - PROTEINURIA [None]
  - RENAL FAILURE [None]
  - TRICUSPID VALVE INCOMPETENCE [None]
  - VOMITING [None]
